FAERS Safety Report 25994940 (Version 1)
Quarter: 2025Q4

REPORT INFORMATION
  Report Type: Spontaneous
  Country: CN (occurrence: CN)
  Receive Date: 20251104
  Receipt Date: 20251104
  Transmission Date: 20260118
  Serious: Yes (Hospitalization, Other)
  Sender: BAXTER
  Company Number: None

PATIENT
  Age: 63 Year
  Sex: Female
  Weight: 61 kg

DRUGS (4)
  1. CYCLOPHOSPHAMIDE [Suspect]
     Active Substance: CYCLOPHOSPHAMIDE
     Indication: Breast cancer female
     Dosage: 0.8 G, QD
     Route: 041
     Dates: start: 20251011, end: 20251011
  2. DEXTROSE [Suspect]
     Active Substance: DEXTROSE MONOHYDRATE
     Dosage: 100 ML, QD, 5% GLUCOSE WITH PIRARUBICIN HYDROCHLORIDE
     Route: 041
     Dates: start: 20251011, end: 20251011
  3. SODIUM CHLORIDE [Suspect]
     Active Substance: SODIUM CHLORIDE
     Dosage: 500 ML, QD, 0.9% SODIUM CHLORIDE WITH CYCLOPHOSPHAMIDE
     Route: 041
     Dates: start: 20251011, end: 20251011
  4. PIRARUBICIN HYDROCHLORIDE [Suspect]
     Active Substance: PIRARUBICIN HYDROCHLORIDE
     Indication: Breast cancer female
     Dosage: 70 MG, QD
     Route: 041
     Dates: start: 20251011, end: 20251011

REACTIONS (3)
  - Myelosuppression [Recovering/Resolving]
  - Decreased appetite [Unknown]
  - Asthenia [Unknown]

NARRATIVE: CASE EVENT DATE: 20251019
